FAERS Safety Report 12756210 (Version 1)
Quarter: 2016Q3

REPORT INFORMATION
  Report Type: Spontaneous
  Country: US (occurrence: US)
  Receive Date: 20160916
  Receipt Date: 20160916
  Transmission Date: 20161109
  Serious: No
  Sender: FDA-Public Use
  Company Number: US-GLAXOSMITHKLINE-US2016GSK135071

PATIENT
  Age: 15 Year
  Sex: Female
  Weight: 59.86 kg

DRUGS (1)
  1. CAMBIA [Suspect]
     Active Substance: DICLOFENAC POTASSIUM
     Indication: MIGRAINE
     Dosage: 50 MG, SINGLE
     Route: 048
     Dates: start: 20160907

REACTIONS (3)
  - Drug effect decreased [Unknown]
  - Drug administered to patient of inappropriate age [Unknown]
  - Off label use [Unknown]
